FAERS Safety Report 14666482 (Version 1)
Quarter: 2018Q1

REPORT INFORMATION
  Report Type: Spontaneous
  Country: US (occurrence: US)
  Receive Date: 20180320
  Receipt Date: 20180320
  Transmission Date: 20180509
  Serious: No
  Sender: FDA-Public Use
  Company Number: None

PATIENT
  Age: 50 Year
  Sex: Female

DRUGS (1)
  1. IBRANCE [Suspect]
     Active Substance: PALBOCICLIB

REACTIONS (5)
  - Pruritus [None]
  - Erythema [None]
  - Dry skin [None]
  - Skin exfoliation [None]
  - Depression [None]

NARRATIVE: CASE EVENT DATE: 20180319
